FAERS Safety Report 14685608 (Version 1)
Quarter: 2018Q1

REPORT INFORMATION
  Report Type: Spontaneous
  Country: CZ (occurrence: CZ)
  Receive Date: 20180327
  Receipt Date: 20180327
  Transmission Date: 20180509
  Serious: Yes (Other)
  Sender: FDA-Public Use
  Company Number: CZ-MYLANLABS-2018M1020649

PATIENT
  Age: 46 Year
  Sex: Female
  Weight: 54 kg

DRUGS (3)
  1. PREDNISONE. [Suspect]
     Active Substance: PREDNISONE
     Route: 065
  2. PREDNISONE. [Suspect]
     Active Substance: PREDNISONE
     Indication: ENDOCRINE OPHTHALMOPATHY
     Dosage: DOSE DECREASED
     Route: 065
     Dates: start: 201602
  3. CYCLOSPORINE. [Concomitant]
     Active Substance: CYCLOSPORINE
     Indication: PRODUCT USED FOR UNKNOWN INDICATION
     Dosage: TRANSIENT
     Route: 065
     Dates: start: 201606

REACTIONS (8)
  - Lumbar vertebral fracture [Unknown]
  - Spinal pain [Unknown]
  - Osteoporosis [Unknown]
  - Spinal cord compression [Unknown]
  - Kyphosis [Unknown]
  - Dyspnoea [Not Recovered/Not Resolved]
  - Gastrointestinal disorder [Not Recovered/Not Resolved]
  - Body height decreased [Unknown]

NARRATIVE: CASE EVENT DATE: 2016
